FAERS Safety Report 5456112-7 (Version None)
Quarter: 2007Q3

REPORT INFORMATION
  Report Type: 
  Country: None (occurrence: None)
  Receive Date: 20070914
  Receipt Date: 20070914
  Transmission Date: 20080115
  Serious: No
  Sender: FDA-Public Use
  Company Number: None

PATIENT
  Age: 64 Year
  Sex: Female
  Weight: 93.8946 kg

DRUGS (9)
  1. ZETIA [Suspect]
     Indication: HYPERLIPIDAEMIA
     Dosage: 10MG QD PO
     Route: 048
     Dates: start: 20070202, end: 20070618
  2. METFORMIN [Concomitant]
  3. GLIPIZIDE [Concomitant]
  4. BENAZEPRIL HYDROCHLORIDE [Concomitant]
  5. HYDROCHLOROTHIAZIDE [Concomitant]
  6. ACTOS [Concomitant]
  7. ALLEGRA [Concomitant]
  8. OMEPRAZOLE [Concomitant]
  9. FLEXERIL [Concomitant]

REACTIONS (1)
  - MYALGIA [None]
